FAERS Safety Report 10008057 (Version 1)
Quarter: 2014Q1

REPORT INFORMATION
  Report Type: Spontaneous
  Country: CA (occurrence: CA)
  Receive Date: 20140313
  Receipt Date: 20140313
  Transmission Date: 20141002
  Serious: Yes (Other)
  Sender: FDA-Public Use
  Company Number: CA-JNJFOC-20140305467

PATIENT
  Sex: 0

DRUGS (1)
  1. REMICADE [Suspect]
     Indication: UVEITIS
     Route: 042
     Dates: start: 201312

REACTIONS (2)
  - Psoriatic arthropathy [Unknown]
  - Off label use [Unknown]
